FAERS Safety Report 6833375-4 (Version None)
Quarter: 2010Q3

REPORT INFORMATION
  Report Type: 
  Country: None (occurrence: None)
  Receive Date: 20100712
  Receipt Date: 20070525
  Transmission Date: 20110219
  Serious: No
  Sender: FDA-Public Use
  Company Number: US-PFIZER INC-2007025111

PATIENT
  Sex: Female
  Weight: 104.33 kg

DRUGS (5)
  1. CHANTIX [Suspect]
     Indication: SMOKING CESSATION THERAPY
     Route: 048
     Dates: start: 20070310
  2. SYNTHROID [Concomitant]
     Indication: AUTOIMMUNE THYROIDITIS
     Route: 048
  3. CYTOMEL [Concomitant]
     Indication: AUTOIMMUNE THYROIDITIS
     Route: 048
  4. IRON [Concomitant]
     Indication: ANAEMIA
     Route: 048
  5. ANTIBIOTICS [Concomitant]
     Indication: INFLUENZA
     Dates: end: 20070101

REACTIONS (3)
  - EPISTAXIS [None]
  - HEADACHE [None]
  - PALPITATIONS [None]
